FAERS Safety Report 5148949-9 (Version None)
Quarter: 2006Q4

REPORT INFORMATION
  Report Type: 
  Country: None (occurrence: None)
  Receive Date: 20061108
  Receipt Date: 20061101
  Transmission Date: 20070319
  Serious: Yes (Death)
  Sender: FDA-Public Use
  Company Number: 163-20785-06050012

PATIENT
  Age: 51 Year
  Sex: Female

DRUGS (10)
  1. THALOMID [Suspect]
     Indication: MULTIPLE MYELOMA
     Dosage: 200 MG, 1 IN 1 D, ORAL; 50 MG DAILY FOR ONE WEEK, GRADUALLY INCREASED DOSE TO 200MG, ORAL
     Route: 048
     Dates: start: 20060413, end: 20060420
  2. THALOMID [Suspect]
     Indication: MULTIPLE MYELOMA
     Dosage: 200 MG, 1 IN 1 D, ORAL; 50 MG DAILY FOR ONE WEEK, GRADUALLY INCREASED DOSE TO 200MG, ORAL
     Route: 048
     Dates: start: 20060504
  3. DECADRON [Concomitant]
  4. ZOMETA [Concomitant]
  5. OXYCONTIN [Concomitant]
  6. COUMADIN [Concomitant]
  7. LYRICA [Concomitant]
  8. PREVACID [Concomitant]
  9. MEGACE [Concomitant]
  10. ROXICODONE [Concomitant]

REACTIONS (4)
  - ACTIVITIES OF DAILY LIVING IMPAIRED [None]
  - DIZZINESS [None]
  - DRUG TOLERANCE DECREASED [None]
  - LUNG NEOPLASM MALIGNANT [None]
